FAERS Safety Report 5002403-3 (Version None)
Quarter: 2006Q2

REPORT INFORMATION
  Report Type: 
  Country: None (occurrence: None)
  Receive Date: 20060510
  Receipt Date: 20060503
  Transmission Date: 20061013
  Serious: Yes (Death)
  Sender: FDA-Public Use
  Company Number: 2006PV013021

PATIENT
  Age: 53 Year
  Sex: Male
  Weight: 110.2241 kg

DRUGS (9)
  1. BYETTA [Suspect]
     Indication: DIABETES MELLITUS NON-INSULIN-DEPENDENT
     Dosage: SEE IMAGE
     Dates: start: 20060206
  2. BYETTA [Suspect]
     Indication: DIABETES MELLITUS NON-INSULIN-DEPENDENT
     Dosage: SEE IMAGE
     Dates: start: 20060220
  3. GLUCOPHAGE XR [Concomitant]
  4. AMARYL [Concomitant]
  5. ACTOS [Concomitant]
  6. VIAGRA [Concomitant]
  7. LIPITOR [Concomitant]
  8. PRILOSEC [Concomitant]
  9. ASPIRIN [Concomitant]

REACTIONS (10)
  - ABDOMINAL DISTENSION [None]
  - BUNDLE BRANCH BLOCK RIGHT [None]
  - CARDIAC FAILURE CONGESTIVE [None]
  - CARDIO-RESPIRATORY ARREST [None]
  - CARDIOVASCULAR DISORDER [None]
  - GASTROENTERITIS [None]
  - MALAISE [None]
  - MYOCARDIAL INFARCTION [None]
  - PULMONARY CONGESTION [None]
  - SEPTIC SHOCK [None]
